FAERS Safety Report 19260366 (Version 1)
Quarter: 2021Q2

REPORT INFORMATION
  Report Type: Spontaneous
  Country: DE (occurrence: DE)
  Receive Date: 20210514
  Receipt Date: 20210514
  Transmission Date: 20210717
  Serious: Yes (Other)
  Sender: FDA-Public Use
  Company Number: DE-009507513-2105DEU002863

PATIENT
  Sex: Female

DRUGS (3)
  1. PACLITAXEL. [Suspect]
     Active Substance: PACLITAXEL
  2. MK?3475 [Suspect]
     Active Substance: PEMBROLIZUMAB
  3. CARBOPLATIN. [Suspect]
     Active Substance: CARBOPLATIN

REACTIONS (1)
  - Atrial fibrillation [Unknown]
